FAERS Safety Report 8407726-3 (Version None)
Quarter: 2012Q2

REPORT INFORMATION
  Report Type: 
  Country: None (occurrence: None)
  Receive Date: 20120604
  Receipt Date: 20101130
  Transmission Date: 20120825
  Serious: Yes (Hospitalization)
  Sender: FDA-Public Use
  Company Number: US-GLAXOSMITHKLINE-A0905623A

PATIENT
  Age: 51 Year
  Sex: Male
  Weight: 104.5 kg

DRUGS (3)
  1. LOTREL [Concomitant]
  2. VIAGRA [Concomitant]
  3. AVANDIA [Suspect]
     Indication: TYPE 2 DIABETES MELLITUS
     Dosage: 8MG PER DAY
     Route: 048
     Dates: start: 20050214, end: 20070303

REACTIONS (3)
  - CARDIOMYOPATHY [None]
  - MYOCARDIAL ISCHAEMIA [None]
  - CARDIAC FAILURE CONGESTIVE [None]
